FAERS Safety Report 18649549 (Version 1)
Quarter: 2020Q4

REPORT INFORMATION
  Report Type: Spontaneous
  Country: US (occurrence: US)
  Receive Date: 20201222
  Receipt Date: 20201222
  Transmission Date: 20210114
  Serious: No
  Sender: FDA-Public Use
  Company Number: US-TEVA-2020-US-1862582

PATIENT
  Age: 76 Year
  Sex: Female

DRUGS (26)
  1. PRILOSEC [Concomitant]
     Active Substance: OMEPRAZOLE MAGNESIUM
     Indication: GASTROOESOPHAGEAL REFLUX DISEASE
     Dates: end: 2016
  2. PALONOSETRON HCL [Concomitant]
     Active Substance: PALONOSETRON HYDROCHLORIDE
  3. EXEMESTANE. [Suspect]
     Active Substance: EXEMESTANE
     Route: 065
  4. DEXAMETHASONE. [Concomitant]
     Active Substance: DEXAMETHASONE
  5. GLUTATHIONE [Concomitant]
     Active Substance: GLUTATHIONE
  6. GLUTAMINE [Concomitant]
     Active Substance: GLUTAMINE
  7. ZITHROMAX [Concomitant]
     Active Substance: AZITHROMYCIN DIHYDRATE
     Dates: start: 2017, end: 2017
  8. FULVESTRANT. [Concomitant]
     Active Substance: FULVESTRANT
     Dosage: DOSAGE: UNKNOWN; NUMBER OF CYCLES: 06
     Dates: start: 20150106
  9. PEGFILGRASTIM [Concomitant]
     Active Substance: PEGFILGRASTIM
  10. COMPAZINE [Concomitant]
     Active Substance: PROCHLORPERAZINE MALEATE
  11. KLOR-CON M20 [Concomitant]
     Active Substance: POTASSIUM CHLORIDE
  12. MUPIROCIN. [Concomitant]
     Active Substance: MUPIROCIN
  13. PROBIOTICS [Concomitant]
     Active Substance: PROBIOTICS NOS
  14. DEXAMETHASONE SODIUM PHOSPHATE. [Concomitant]
     Active Substance: DEXAMETHASONE SODIUM PHOSPHATE
  15. GABAPENTIN. [Concomitant]
     Active Substance: GABAPENTIN
  16. CALCIUM D3 [Concomitant]
     Active Substance: CALCIUM\CHOLECALCIFEROL
  17. LIOTHYRONINE SODIUM. [Concomitant]
     Active Substance: LIOTHYRONINE SODIUM
  18. ANASTROZOLE. [Suspect]
     Active Substance: ANASTROZOLE
     Route: 065
  19. CHLORTHALIDONE. [Concomitant]
     Active Substance: CHLORTHALIDONE
     Dates: start: 201411
  20. D5 1/2 NS [Concomitant]
  21. VALACICLOVIR HCL [Concomitant]
     Active Substance: VALACYCLOVIR HYDROCHLORIDE
  22. PANTOPRAZOLE [Concomitant]
     Active Substance: PANTOPRAZOLE
     Dates: start: 2017
  23. OMEPRAZOLE. [Concomitant]
     Active Substance: OMEPRAZOLE
     Dates: start: 2016
  24. PROCHLORPERAZINE MALEATE. [Concomitant]
     Active Substance: PROCHLORPERAZINE MALEATE
  25. SODIUM CHLORIDE. [Concomitant]
     Active Substance: SODIUM CHLORIDE
  26. AMINO ACIDS [Concomitant]
     Active Substance: AMINO ACIDS, SOURCE UNSPECIFIED

REACTIONS (1)
  - Arthralgia [Unknown]
